FAERS Safety Report 7179640-5 (Version None)
Quarter: 2010Q4

REPORT INFORMATION
  Report Type: 
  Country: None (occurrence: None)
  Receive Date: 20101208
  Receipt Date: 20101202
  Transmission Date: 20110411
  Serious: Yes (Hospitalization)
  Sender: FDA-Public Use
  Company Number: TRP_07434_2010

PATIENT
  Sex: Female
  Weight: 66.6788 kg

DRUGS (6)
  1. INFERGEN 15UG (NOT SPECIFIED) [Suspect]
     Indication: HEPATITIS C
     Dosage: 15 UG QD SUBCUTANEOUS
     Route: 058
     Dates: start: 20101115, end: 20101123
  2. RIBASPHERE [Suspect]
     Indication: HEPATITIS C
     Dosage: 800 MG, DAILY ORAL
     Route: 048
     Dates: start: 20101115, end: 20101123
  3. LISINOPRIL AND HYDROCHLOROTHIAZIDE [Concomitant]
  4. METOPROLOL [Concomitant]
  5. PROPAFENONE HCL [Concomitant]
  6. METFORMIN [Concomitant]

REACTIONS (5)
  - BLOOD GLUCOSE INCREASED [None]
  - EPISTAXIS [None]
  - MALAISE [None]
  - PLATELET COUNT DECREASED [None]
  - WEIGHT DECREASED [None]
